FAERS Safety Report 6241344-0 (Version None)
Quarter: 2009Q2

REPORT INFORMATION
  Report Type: 
  Country: None (occurrence: None)
  Receive Date: 20090619
  Receipt Date: 20090619
  Transmission Date: 20091009
  Serious: Yes (Other)
  Sender: FDA-Public Use
  Company Number: None

PATIENT
  Age: 60 Year
  Sex: Female
  Weight: 70.3075 kg

DRUGS (1)
  1. ZICAM NASAL GEL [Suspect]
     Indication: NASOPHARYNGITIS
     Dosage: 1 DROP PER NOSTRIL 2 DAILY NASAL
     Route: 045
     Dates: start: 20090514, end: 20090515

REACTIONS (4)
  - AGEUSIA [None]
  - ANOSMIA [None]
  - ASTHENIA [None]
  - INFLUENZA [None]
